FAERS Safety Report 9909116 (Version 3)
Quarter: 2014Q2

REPORT INFORMATION
  Report Type: Spontaneous
  Country: FR (occurrence: FR)
  Receive Date: 20140219
  Receipt Date: 20140409
  Transmission Date: 20141212
  Serious: Yes (Other)
  Sender: FDA-Public Use
  Company Number: FR-PFIZER INC-2014042571

PATIENT
  Age: 18 Year
  Sex: Female
  Weight: 52 kg

DRUGS (1)
  1. ADVIL [Suspect]
     Indication: MIGRAINE
     Dosage: 800 MG, SINGLE
     Route: 048
     Dates: start: 20140109, end: 20140109

REACTIONS (4)
  - Incorrect dose administered [Recovered/Resolved]
  - Medication error [Recovered/Resolved]
  - Dizziness [Recovered/Resolved]
  - Nausea [Recovered/Resolved]
